FAERS Safety Report 12896695 (Version 2)
Quarter: 2016Q4

REPORT INFORMATION
  Report Type: Spontaneous
  Country: BR (occurrence: BR)
  Receive Date: 20161031
  Receipt Date: 20161123
  Transmission Date: 20170207
  Serious: Yes (Other)
  Sender: FDA-Public Use
  Company Number: BR-GLAXOSMITHKLINE-BR2016GSK154843

PATIENT
  Sex: Female
  Weight: 78 kg

DRUGS (5)
  1. PREDSIM (PREDNISOLONE) [Concomitant]
     Indication: PAIN
     Dosage: 5 MG, QD
     Route: 048
     Dates: start: 2005
  2. PANTOPRAZOLE [Concomitant]
     Active Substance: PANTOPRAZOLE SODIUM
     Indication: GASTRIC DISORDER
     Dosage: 5 MG, QD
     Route: 048
     Dates: start: 2005
  3. SERETIDE [Suspect]
     Active Substance: FLUTICASONE PROPIONATE\SALMETEROL XINAFOATE
     Indication: BRONCHITIS
     Dosage: 1 PUFF(S), QD
     Route: 055
  4. PRESID (FELODIPINE) [Concomitant]
     Indication: HYPERTENSION
     Dosage: 1 UNK, QD
     Route: 048
     Dates: start: 2005
  5. ARAVA [Concomitant]
     Active Substance: LEFLUNOMIDE
     Indication: ARTHRITIS
     Dosage: 20 MG, QD
     Route: 048
     Dates: start: 2005

REACTIONS (8)
  - Dyspnoea [Recovered/Resolved]
  - Lung abscess [Not Recovered/Not Resolved]
  - Productive cough [Unknown]
  - Cough [Recovered/Resolved]
  - Product quality issue [Unknown]
  - Dyspnoea [Unknown]
  - Pulmonary pain [Unknown]
  - Lung disorder [Unknown]
